FAERS Safety Report 14272222 (Version 2)
Quarter: 2019Q2

REPORT INFORMATION
  Report Type: Spontaneous
  Country: ES (occurrence: ES)
  Receive Date: 20171212
  Receipt Date: 20190606
  Transmission Date: 20190711
  Serious: Yes (Other)
  Sender: FDA-Public Use
  Company Number: ES-MYLANLABS-2017M1076443

PATIENT
  Age: 46 Year
  Sex: Female

DRUGS (7)
  1. IDARUBICIN [Suspect]
     Active Substance: IDARUBICIN
     Indication: ACUTE PROMYELOCYTIC LEUKAEMIA
     Dosage: REGIME #1: INDUCTION THERAPY
     Route: 065
  2. TRETINOIN MYLAN [Suspect]
     Active Substance: TRETINOIN
     Indication: ACUTE PROMYELOCYTIC LEUKAEMIA
     Dosage: REGIME #3: MAINTENANCE THERAPY
     Route: 065
  3. TRETINOIN MYLAN [Suspect]
     Active Substance: TRETINOIN
     Dosage: REGIME #2: THREE CYCLES OF CONSOLIDATION
  4. METHOTREXATE. [Suspect]
     Active Substance: METHOTREXATE
     Indication: ACUTE PROMYELOCYTIC LEUKAEMIA
     Dosage: REGIME #3: MAINTENANCE THERAPY
     Route: 065
  5. MERCAPTOPURINE. [Suspect]
     Active Substance: MERCAPTOPURINE
     Indication: ACUTE PROMYELOCYTIC LEUKAEMIA
     Dosage: REGIME #3: MAINTENANCE THERAPY
     Route: 065
  6. IDARUBICIN [Suspect]
     Active Substance: IDARUBICIN
     Dosage: REGIME #2: THREE CYCLES OF CONSOLIDATION
  7. TRETINOIN MYLAN [Suspect]
     Active Substance: TRETINOIN
     Dosage: REGIME #1: INDUCTION THERAPY

REACTIONS (3)
  - Acute myeloid leukaemia [Unknown]
  - Second primary malignancy [Unknown]
  - Leukaemia recurrent [Recovered/Resolved]

NARRATIVE: CASE EVENT DATE: 2010
